FAERS Safety Report 12613461 (Version 1)
Quarter: 2016Q3

REPORT INFORMATION
  Report Type: Spontaneous
  Country: US (occurrence: None)
  Receive Date: 20160801
  Receipt Date: 20160801
  Transmission Date: 20161109
  Serious: Yes (Hospitalization, Other)
  Sender: FDA-Public Use
  Company Number: None

PATIENT
  Age: 28 Year
  Sex: Female
  Weight: 63.5 kg

DRUGS (12)
  1. PANTOPRAZOLE [Concomitant]
     Active Substance: PANTOPRAZOLE SODIUM
  2. BENTYL [Concomitant]
     Active Substance: DICYCLOMINE HYDROCHLORIDE
  3. WELLBUTRIN [Concomitant]
     Active Substance: BUPROPION HYDROCHLORIDE
  4. CETERIZINE [Concomitant]
  5. TYLENOL PM [Concomitant]
     Active Substance: ACETAMINOPHEN\DIPHENHYDRAMINE
  6. TYLENOL EXTRA STRENGTH [Concomitant]
     Active Substance: ACETAMINOPHEN
  7. LUPRON DEPOT [Suspect]
     Active Substance: LEUPROLIDE ACETATE
     Indication: ENDOMETRIOSIS
     Route: 030
     Dates: start: 20160318, end: 20160626
  8. LUPRON DEPOT [Suspect]
     Active Substance: LEUPROLIDE ACETATE
     Indication: POST PROCEDURAL COMPLICATION
     Route: 030
     Dates: start: 20160318, end: 20160626
  9. SINGULAIR [Concomitant]
     Active Substance: MONTELUKAST SODIUM
  10. COLACE [Concomitant]
     Active Substance: DOCUSATE SODIUM
  11. KLONOPIN [Concomitant]
     Active Substance: CLONAZEPAM
  12. ADDERALL [Concomitant]
     Active Substance: AMPHETAMINE ASPARTATE\AMPHETAMINE SULFATE\DEXTROAMPHETAMINE SACCHARATE\DEXTROAMPHETAMINE SULFATE

REACTIONS (18)
  - Mood swings [None]
  - Abdominal discomfort [None]
  - Alopecia [None]
  - Vomiting [None]
  - Diarrhoea [None]
  - Non-24-hour sleep-wake disorder [None]
  - Urticaria [None]
  - Feeding disorder [None]
  - Depression [None]
  - Bone pain [None]
  - Headache [None]
  - Memory impairment [None]
  - Polydipsia [None]
  - Haemoptysis [None]
  - Job dissatisfaction [None]
  - Weight decreased [None]
  - Fatigue [None]
  - Urine viscosity decreased [None]

NARRATIVE: CASE EVENT DATE: 20160318
